FAERS Safety Report 11335698 (Version 1)
Quarter: 2015Q3

REPORT INFORMATION
  Report Type: Spontaneous
  Country: BR (occurrence: BR)
  Receive Date: 20150804
  Receipt Date: 20150804
  Transmission Date: 20151125
  Serious: Yes (Other)
  Sender: FDA-Public Use
  Company Number: BR-PFIZER INC-2015254567

PATIENT
  Sex: Male

DRUGS (1)
  1. FRONTAL XR [Suspect]
     Active Substance: ALPRAZOLAM
     Dosage: UNK
     Route: 048

REACTIONS (2)
  - Ischaemic stroke [Unknown]
  - Insomnia [Unknown]

NARRATIVE: CASE EVENT DATE: 2014
